FAERS Safety Report 18094490 (Version 3)
Quarter: 2021Q1

REPORT INFORMATION
  Report Type: Spontaneous
  Country: NL (occurrence: NL)
  Receive Date: 20200731
  Receipt Date: 20210115
  Transmission Date: 20210419
  Serious: Yes (Death, Hospitalization, Other)
  Sender: FDA-Public Use
  Company Number: NL-AUROBINDO-AUR-APL-2017-11311

PATIENT
  Age: 17 Year
  Sex: Female
  Weight: 55 kg

DRUGS (26)
  1. AMOXICILLIN TRIHYDRATE [Suspect]
     Active Substance: AMOXICILLIN
     Indication: PNEUMONIA
     Dosage: 1650 MILLIGRAM
     Route: 042
  2. HYDROCORTISONE. [Concomitant]
     Active Substance: HYDROCORTISONE
     Indication: PRODUCT USED FOR UNKNOWN INDICATION
     Dosage: UNK
     Route: 042
  3. NADROPARIN [Concomitant]
     Active Substance: NADROPARIN
     Indication: PRODUCT USED FOR UNKNOWN INDICATION
     Dosage: UNK
     Route: 058
  4. MIDAZOLAM. [Concomitant]
     Active Substance: MIDAZOLAM
     Indication: PRODUCT USED FOR UNKNOWN INDICATION
     Dosage: UNK
     Route: 065
  5. DOMPERIDONE [Concomitant]
     Active Substance: DOMPERIDONE
     Indication: PRODUCT USED FOR UNKNOWN INDICATION
     Dosage: 20 MILLIGRAM
     Route: 048
  6. KLYSMA SORBIT [Concomitant]
     Indication: PRODUCT USED FOR UNKNOWN INDICATION
     Dosage: UNK
     Route: 054
  7. OMEPRAZOLE. [Concomitant]
     Active Substance: OMEPRAZOLE
     Indication: PRODUCT USED FOR UNKNOWN INDICATION
     Dosage: 40 MILLIGRAM
     Route: 048
  8. FUROSEMIDE. [Concomitant]
     Active Substance: FUROSEMIDE
     Indication: PRODUCT USED FOR UNKNOWN INDICATION
     Dosage: 20?40MG
     Route: 042
  9. GASTER [Concomitant]
     Active Substance: FAMOTIDINE
     Indication: PROPHYLAXIS
     Dosage: 40 MILLIGRAM, ONCE A DAY
     Route: 048
     Dates: start: 20110419
  10. CEFUROXIME. [Suspect]
     Active Substance: CEFUROXIME
     Indication: PNEUMONIA
     Dosage: UNKNOWN
     Route: 065
  11. BROMHEXINE [Concomitant]
     Active Substance: BROMHEXINE
     Indication: PRODUCT USED FOR UNKNOWN INDICATION
     Dosage: 16 MILLIGRAM
     Route: 048
  12. LEVOCARNITINE. [Concomitant]
     Active Substance: LEVOCARNITINE
     Indication: PRODUCT USED FOR UNKNOWN INDICATION
     Dosage: 1000 MILLIGRAM
     Route: 048
  13. AMOXICILLIN+CLAVULANIC ACID [Suspect]
     Active Substance: AMOXICILLIN\CLAVULANIC ACID
     Indication: PNEUMONIA
     Dosage: 1650 MILLIGRAM, ONCE A DAY
     Route: 042
  14. PARACETAMOL [Suspect]
     Active Substance: ACETAMINOPHEN
     Indication: POSTOPERATIVE ANALGESIA
     Dosage: AVERAGE DOSE OF 40 NMOL/ML/DAY, (MAX 90 NMOL/ML/DAY)
     Route: 054
  15. PROPOFOL. [Concomitant]
     Active Substance: PROPOFOL
     Indication: TRACHEOSTOMY
     Dosage: 6 MG/KG/HR FOR 2 HOURS
     Route: 065
  16. FENTANYL. [Concomitant]
     Active Substance: FENTANYL
     Indication: TRACHEOSTOMY
     Dosage: UNK
     Route: 065
  17. GASLON [Concomitant]
     Active Substance: IRSOGLADINE MALEATE
     Indication: PROPHYLAXIS
     Dosage: 2 MILLIGRAM, TWO TIMES A DAY
     Route: 048
     Dates: start: 20110419
  18. METOCLOPRAMIDE. [Concomitant]
     Active Substance: METOCLOPRAMIDE
     Indication: PRODUCT USED FOR UNKNOWN INDICATION
     Dosage: UNK
     Route: 042
  19. CLARITHROMYCIN. [Suspect]
     Active Substance: CLARITHROMYCIN
     Indication: PNEUMONIA
     Dosage: 500 MILLIGRAM, ONCE A DAY
     Route: 048
  20. ALIMEMAZINE [Concomitant]
     Active Substance: TRIMEPRAZINE
     Indication: PRODUCT USED FOR UNKNOWN INDICATION
     Dosage: 25 MILLIGRAM, ONCE A DAY
     Route: 048
  21. ACTRAPID [Concomitant]
     Active Substance: INSULIN HUMAN
     Indication: PRODUCT USED FOR UNKNOWN INDICATION
     Dosage: 10?100 IU/KG/H
     Route: 065
  22. LACTULOSE. [Concomitant]
     Active Substance: LACTULOSE
     Indication: PRODUCT USED FOR UNKNOWN INDICATION
     Dosage: 20 MILLILITER
     Route: 048
  23. KETAMINE [Concomitant]
     Active Substance: KETAMINE
     Indication: PRODUCT USED FOR UNKNOWN INDICATION
     Dosage: UNK
     Route: 065
  24. DASATINIB. [Suspect]
     Active Substance: DASATINIB
     Indication: CHRONIC MYELOID LEUKAEMIA
     Dosage: 70 MILLIGRAM, TWO TIMES A DAY
     Route: 048
     Dates: start: 20110420, end: 20110711
  25. ROCURONIUM [Concomitant]
     Active Substance: ROCURONIUM BROMIDE
     Indication: TRACHEOSTOMY
     Dosage: 10 MILLIGRAM, ONCE A DAY
     Route: 042
  26. MIYA?BM [Concomitant]
     Active Substance: CLOSTRIDIUM BUTYRICUM SPORES STRAIN M-55
     Indication: PROPHYLAXIS
     Dosage: 3 GRAM, 3 TIMES A DAY
     Route: 048
     Dates: start: 20110429

REACTIONS (9)
  - Hypotension [Unknown]
  - Nausea [Unknown]
  - Vomiting [Unknown]
  - Jaundice [Unknown]
  - Multiple organ dysfunction syndrome [Fatal]
  - Shock [Fatal]
  - Abdominal pain [Unknown]
  - Cytomegalovirus enterocolitis [Recovering/Resolving]
  - Acute hepatic failure [Fatal]

NARRATIVE: CASE EVENT DATE: 20110703
